FAERS Safety Report 12642095 (Version 3)
Quarter: 2016Q3

REPORT INFORMATION
  Report Type: Report from Study
  Country: AU (occurrence: AU)
  Receive Date: 20160810
  Receipt Date: 20160928
  Transmission Date: 20161109
  Serious: Yes (Hospitalization, Other)
  Sender: FDA-Public Use
  Company Number: AU-BRISTOL-MYERS SQUIBB COMPANY-BMS-2016-050298

PATIENT
  Age: 70 Year
  Sex: Male
  Weight: 102.8 kg

DRUGS (17)
  1. FEXOFENADINE [Concomitant]
     Active Substance: FEXOFENADINE\FEXOFENADINE HYDROCHLORIDE
     Indication: RASH MACULO-PAPULAR
     Dosage: 180 MG, UNK
     Route: 048
     Dates: start: 20160520
  2. ROSUVASTATIN. [Concomitant]
     Active Substance: ROSUVASTATIN
     Indication: HYPERLIPIDAEMIA
     Dosage: 10 MG, UNK
     Route: 048
     Dates: start: 20160310
  3. NIVOLUMAB [Suspect]
     Active Substance: NIVOLUMAB
     Dosage: 1 DF, UNK
     Route: 065
     Dates: start: 20160602, end: 20160602
  4. ENOXAPARIN [Concomitant]
     Active Substance: ENOXAPARIN
     Indication: THROMBOSIS PROPHYLAXIS
     Dosage: 40 MG, UNK
     Route: 058
     Dates: start: 20160512
  5. PROMETHAZINE [Concomitant]
     Active Substance: PROMETHAZINE\PROMETHAZINE HYDROCHLORIDE
     Indication: MUSCULOSKELETAL DISCOMFORT
     Dosage: 12.5 MG, UNK
     Route: 042
     Dates: start: 20160602, end: 20160602
  6. PREDNISONE. [Concomitant]
     Active Substance: PREDNISONE
     Indication: HEADACHE
     Dosage: 100 MG, UNK
     Route: 048
     Dates: start: 20160607, end: 20160613
  7. PREDNISONE. [Concomitant]
     Active Substance: PREDNISONE
     Dosage: 75 MG, UNK
     Route: 048
     Dates: start: 20160614, end: 20160616
  8. VALACYCLOVIR [Concomitant]
     Active Substance: VALACYCLOVIR HYDROCHLORIDE
     Indication: GENITAL HERPES
     Dosage: 1 G, UNK
     Route: 048
     Dates: start: 19961111
  9. PANADEINE FORTE [Concomitant]
     Active Substance: ACETAMINOPHEN\CODEINE PHOSPHATE
     Indication: OSTEOARTHRITIS
     Dosage: 2 TAB, UNK
     Route: 048
     Dates: start: 19961111
  10. IPILIMUMAB [Suspect]
     Active Substance: IPILIMUMAB
     Dosage: 1 DF, UNK
     Route: 065
     Dates: start: 20160602, end: 20160602
  11. HYDROCORTISONE. [Concomitant]
     Active Substance: HYDROCORTISONE
     Indication: RASH MACULO-PAPULAR
     Dosage: 1 DF, UNK
     Route: 061
     Dates: start: 20160524
  12. ZOPICLONE [Concomitant]
     Active Substance: ZOPICLONE
     Indication: INSOMNIA
     Dosage: 7.5 MG, UNK
     Route: 048
     Dates: start: 20160305
  13. NIVOLUMAB [Suspect]
     Active Substance: NIVOLUMAB
     Indication: MALIGNANT MELANOMA
     Dosage: 1 DF, UNK
     Route: 065
     Dates: start: 20160512, end: 20160512
  14. TEMAZEPAM. [Concomitant]
     Active Substance: TEMAZEPAM
     Indication: INSOMNIA
     Dosage: 10 MG, UNK
     Route: 048
     Dates: start: 2006
  15. IBUPROFEN. [Concomitant]
     Active Substance: IBUPROFEN
     Indication: OSTEOARTHRITIS
     Dosage: 400 MG, UNK
     Route: 048
     Dates: start: 2011
  16. IPILIMUMAB [Suspect]
     Active Substance: IPILIMUMAB
     Indication: MALIGNANT MELANOMA
     Dosage: 1 DF, UNK
     Route: 065
     Dates: start: 20160512, end: 20160512
  17. PANTOPRAZOLE [Concomitant]
     Active Substance: PANTOPRAZOLE SODIUM
     Indication: GASTRIC DISORDER
     Dosage: 80 MG, UNK
     Route: 048
     Dates: start: 20160607, end: 20160728

REACTIONS (2)
  - Enteritis [Recovered/Resolved]
  - Pyrexia [Recovered/Resolved]

NARRATIVE: CASE EVENT DATE: 20160616
